FAERS Safety Report 20446348 (Version 1)
Quarter: 2022Q1

REPORT INFORMATION
  Report Type: Other
  Country: US (occurrence: None)
  Receive Date: 20220208
  Receipt Date: 20220208
  Transmission Date: 20220423
  Serious: Yes (Hospitalization)
  Sender: FDA-Public Use
  Company Number: US-ROCHE-3016065

PATIENT
  Sex: Male
  Weight: 217 kg

DRUGS (19)
  1. XOLAIR [Suspect]
     Active Substance: OMALIZUMAB
     Indication: Asthma
     Dosage: INJECT 375MG SUBCUTANEOUSLY EVERY 2 WEEK(S)
     Route: 058
  2. XOLAIR [Suspect]
     Active Substance: OMALIZUMAB
     Indication: Asthma
  3. ALBUTEROL SULFATE [Concomitant]
     Active Substance: ALBUTEROL SULFATE
     Dosage: 2.5MG/3ML, 0.083% INHALATION NEBULIZATION SOLUTION
  4. ATORVASTATIN CALCIUM [Concomitant]
     Active Substance: ATORVASTATIN CALCIUM
     Route: 048
  5. ALBUTEROL SULFATE [Concomitant]
     Active Substance: ALBUTEROL SULFATE
     Dosage: 108MCG/ACT INHALATION AEROSOL SOLUTION, INHALE 1 TO 2 PUFFS EVERY 4-6 HOURS AS NEEDED
  6. BENZONATATE [Concomitant]
     Active Substance: BENZONATATE
     Route: 048
  7. BUDESONIDE\FORMOTEROL FUMARATE [Concomitant]
     Active Substance: BUDESONIDE\FORMOTEROL FUMARATE
     Dosage: 160-4.5MCG/ ACT INHALATION AEROSOL, INHALE 2 PUFFS TWICE DAILY, RINSE MOUTH AFTER USE
  8. METFORMIN HYDROCHLORIDE [Concomitant]
     Active Substance: METFORMIN HYDROCHLORIDE
     Route: 048
  9. NIFEDIPINE [Concomitant]
     Active Substance: NIFEDIPINE
     Route: 048
  10. PREDNISONE [Concomitant]
     Active Substance: PREDNISONE
     Route: 048
  11. PREDNISONE [Concomitant]
     Active Substance: PREDNISONE
     Route: 048
  12. PREDNISONE [Concomitant]
     Active Substance: PREDNISONE
     Route: 048
  13. REPAGLINIDE [Concomitant]
     Active Substance: REPAGLINIDE
     Dosage: 30 MINS BEFORE MEALS
     Route: 048
  14. SPIRIVA RESPIMAT [Concomitant]
     Active Substance: TIOTROPIUM BROMIDE
     Dosage: ACT INHALATION, AEROSOL SOLUTION
  15. TRELEGY ELLIPTA [Concomitant]
     Active Substance: FLUTICASONE FUROATE\UMECLIDINIUM BROMIDE\VILANTEROL TRIFENATATE
     Dosage: 100-62.5 TO 25MCG/INH AEROSOL POWDER BREATH ACTIVATED,INHALE 1 PUFF DAILY, RINSE MOUTH AFTER USE
  16. VICTOZA [Concomitant]
     Active Substance: LIRAGLUTIDE
     Dosage: 18MG/3ML SOLUTION PEN INJECTOR, INJECT 1.25 MG SUBCUTANEOUSLY EVERY DAY
  17. VITAMIN C [Concomitant]
     Active Substance: ASCORBIC ACID
     Route: 048
  18. VITAMIN D3 [Concomitant]
     Active Substance: CHOLECALCIFEROL
     Route: 048
  19. ZETIA [Concomitant]
     Active Substance: EZETIMIBE
     Route: 048

REACTIONS (2)
  - Dyspnoea [Not Recovered/Not Resolved]
  - Off label use [Unknown]
